FAERS Safety Report 17893378 (Version 1)
Quarter: 2020Q2

REPORT INFORMATION
  Report Type: Spontaneous
  Country: ES (occurrence: ES)
  Receive Date: 20200615
  Receipt Date: 20200615
  Transmission Date: 20200714
  Serious: Yes (Other)
  Sender: FDA-Public Use
  Company Number: ES-CIPLA LTD.-2020ES04015

PATIENT

DRUGS (10)
  1. LEVOFLOXACIN. [Suspect]
     Active Substance: LEVOFLOXACIN
     Indication: COVID-19 PNEUMONIA
     Dosage: 500 MILLIGRAM, QD (PER DAY)
     Route: 048
     Dates: start: 20200316, end: 20200319
  2. KALETRA [Interacting]
     Active Substance: LOPINAVIR\RITONAVIR
     Indication: COVID-19 PNEUMONIA
     Dosage: 2 DOSAGE FORM, BID (EVERY 12 HRS)
     Route: 048
     Dates: start: 20200323, end: 20200326
  3. AZITROMICINA [Interacting]
     Active Substance: AZITHROMYCIN DIHYDRATE
     Indication: COVID-19 PNEUMONIA
     Dosage: 500 MILLIGRAM, QD (EVERY 24 HRS)
     Route: 042
     Dates: start: 20200323, end: 20200326
  4. LOSARTAN. [Concomitant]
     Active Substance: LOSARTAN
     Indication: HYPERTENSION
     Dosage: 50 MILLIGRAM, BID (EVERY 12 HRS)
     Route: 048
     Dates: start: 20200317, end: 20200410
  5. PIPERACILINA + TAZOBACTAM [Concomitant]
     Active Substance: PIPERACILLIN SODIUM\TAZOBACTAM SODIUM
     Indication: COVID-19 PNEUMONIA
     Dosage: 1 DOSAGE FORM, TID (EVERY 8 HOURS)
     Route: 042
     Dates: start: 20200319, end: 20200325
  6. NOVORAPID [Concomitant]
     Active Substance: INSULIN ASPART
     Indication: TYPE 2 DIABETES MELLITUS
     Dosage: 10 INTERNATIONAL UNIT, TID (EVERY 8 HOURS)
     Route: 058
     Dates: start: 20200316, end: 20200410
  7. ENOXAPARINA SODICA [Concomitant]
     Active Substance: ENOXAPARIN SODIUM
     Indication: THROMBOSIS PROPHYLAXIS
     Dosage: 40 MILLIGRAM, QD (EVERY 24 HRS)
     Route: 058
     Dates: start: 20200317, end: 20200410
  8. HIDROXICLOROQUINA SULFATO [Interacting]
     Active Substance: HYDROXYCHLOROQUINE SULFATE
     Indication: COVID-19 PNEUMONIA
     Dosage: 400 MILLIGRAM, BID (EVERY 12 HOURS)
     Route: 048
     Dates: start: 20200320, end: 20200325
  9. OSELTAMIVIR [Concomitant]
     Active Substance: OSELTAMIVIR
     Indication: COVID-19 PNEUMONIA
     Dosage: 75 MILLIGRAM, QID (EVERY 6 HRS)
     Route: 048
     Dates: start: 20200316, end: 20200318
  10. TOCILIZUMAB. [Concomitant]
     Active Substance: TOCILIZUMAB
     Indication: COVID-19 PNEUMONIA
     Dosage: 600 MILLIGRAM, IN TOTAL
     Route: 042
     Dates: start: 20200326, end: 20200326

REACTIONS (1)
  - Long QT syndrome [Recovered/Resolved]

NARRATIVE: CASE EVENT DATE: 20200326
